FAERS Safety Report 23604819 (Version 1)
Quarter: 2024Q1

REPORT INFORMATION
  Report Type: Spontaneous
  Country: CN (occurrence: CN)
  Receive Date: 20240307
  Receipt Date: 20240307
  Transmission Date: 20240410
  Serious: Yes (Other)
  Sender: FDA-Public Use
  Company Number: None

PATIENT
  Age: 54 Year
  Sex: Male

DRUGS (4)
  1. PREDNISOLONE [Suspect]
     Active Substance: PREDNISOLONE
     Indication: Angioimmunoblastic T-cell lymphoma stage III
     Dosage: 500 MILLIGRAM, CYCLICAL (100 MG/DAY, DAYS 1-5) (CMOP REGIMEN)
     Route: 065
     Dates: start: 202202, end: 202207
  2. MITOXANTRONE HYDROCHLORIDE [Suspect]
     Active Substance: MITOXANTRONE HYDROCHLORIDE
     Indication: Angioimmunoblastic T-cell lymphoma stage III
     Dosage: 18 MILLIGRAM/SQ. METER, CYCLICAL (18 MG/M2, DAY 1) (LIPOSOMES) (CMOP REGIMEN)
     Route: 065
     Dates: start: 202207, end: 202210
  3. VINCRISTINE [Suspect]
     Active Substance: VINCRISTINE
     Indication: Angioimmunoblastic T-cell lymphoma stage III
     Dosage: 1.4 MILLIGRAM/SQ. METER, CYCLICAL (1.4 MG/M2, DAY 1) (CMOP REGIMEN)
     Route: 065
     Dates: start: 202203, end: 202209
  4. CYCLOPHOSPHAMIDE [Suspect]
     Active Substance: CYCLOPHOSPHAMIDE
     Indication: Angioimmunoblastic T-cell lymphoma stage III
     Dosage: 750 MILLIGRAM/SQ. METER, CYCLICAL (750 MG/M2, DAY 1) (CMOP REGIMEN)
     Route: 065
     Dates: start: 202207, end: 202210

REACTIONS (3)
  - Haematotoxicity [Unknown]
  - Skin hyperpigmentation [Recovered/Resolved]
  - Nausea [Unknown]

NARRATIVE: CASE EVENT DATE: 20220101
